FAERS Safety Report 15010155 (Version 1)
Quarter: 2018Q2

REPORT INFORMATION
  Report Type: Spontaneous
  Country: FR (occurrence: FR)
  Receive Date: 20180614
  Receipt Date: 20180614
  Transmission Date: 20180711
  Serious: Yes (Hospitalization)
  Sender: FDA-Public Use
  Company Number: FR-BAUSCH-BL-2018-016560

PATIENT
  Age: 63 Year
  Sex: Female

DRUGS (5)
  1. LOCOID [Suspect]
     Active Substance: HYDROCORTISONE BUTYRATE
     Indication: ERYTHEMA
     Dosage: 1/2 TO 1/3 OF THE TUBE PER DAY
     Route: 003
     Dates: start: 20180522, end: 20180524
  2. IRBESARTAN. [Suspect]
     Active Substance: IRBESARTAN
     Indication: HYPERTENSION
     Dosage: 150 MG IN THE MORNING
     Route: 048
  3. AERIUS [Suspect]
     Active Substance: DESLORATADINE
     Indication: ERYTHEMA
     Route: 048
     Dates: start: 20180522, end: 20180524
  4. CLOPIDOGREL [Concomitant]
     Active Substance: CLOPIDOGREL BISULFATE
     Indication: PRODUCT USED FOR UNKNOWN INDICATION
  5. ROSUVASTATINE [Suspect]
     Active Substance: ROSUVASTATIN
     Indication: HYPERCHOLESTEROLAEMIA
     Dosage: 5 MG IN THE EVENING.
     Route: 048

REACTIONS (1)
  - Rash erythematous [Recovering/Resolving]

NARRATIVE: CASE EVENT DATE: 20180522
